FAERS Safety Report 8300054-6 (Version None)
Quarter: 2012Q2

REPORT INFORMATION
  Report Type: 
  Country: None (occurrence: None)
  Receive Date: 20120420
  Receipt Date: 20120417
  Transmission Date: 20120825
  Serious: No
  Sender: FDA-Public Use
  Company Number: US-PFIZER INC-2012066066

PATIENT
  Sex: Female
  Weight: 86.621 kg

DRUGS (4)
  1. PROTONIX [Suspect]
     Dosage: UNK
  2. LEXAPRO [Concomitant]
     Indication: DEPRESSION
     Dosage: UNK
  3. KLONOPIN [Concomitant]
     Dosage: UNK
  4. PROTONIX [Suspect]
     Indication: GASTROOESOPHAGEAL REFLUX DISEASE
     Dosage: 40 MG, 2X/DAY

REACTIONS (1)
  - DRUG INEFFECTIVE [None]
